FAERS Safety Report 11439305 (Version 1)
Quarter: 2015Q3

REPORT INFORMATION
  Report Type: Spontaneous
  Country: US (occurrence: None)
  Receive Date: 20150831
  Receipt Date: 20150831
  Transmission Date: 20151125
  Serious: Yes (Other)
  Sender: FDA-Public Use
  Company Number: None

PATIENT
  Age: 63 Year
  Sex: Female

DRUGS (8)
  1. AMPHETAMINE 20MG TABLET CORE PHARMA LLC [Suspect]
     Active Substance: AMPHETAMINE
     Indication: NARCOLEPSY
     Dosage: 20M?1QID?PO
     Route: 048
     Dates: start: 20150801, end: 20150807
  2. HYDROCODONE/APAP [Concomitant]
     Active Substance: ACETAMINOPHEN\HYDROCODONE BITARTRATE
  3. LISINOPRIL. [Concomitant]
     Active Substance: LISINOPRIL
  4. TRAMADOL. [Concomitant]
     Active Substance: TRAMADOL
  5. ALPRAZOLAM. [Concomitant]
     Active Substance: ALPRAZOLAM
  6. ZOLPIDEM [Concomitant]
     Active Substance: ZOLPIDEM\ZOLPIDEM TARTRATE
  7. ATENOLOL. [Concomitant]
     Active Substance: ATENOLOL
  8. ALENDRONATE [Concomitant]
     Active Substance: ALENDRONATE SODIUM

REACTIONS (3)
  - Dysarthria [None]
  - Gait disturbance [None]
  - Drug interaction [None]

NARRATIVE: CASE EVENT DATE: 20150807
